FAERS Safety Report 23594622 (Version 1)
Quarter: 2024Q1

REPORT INFORMATION
  Report Type: Spontaneous
  Country: US (occurrence: US)
  Receive Date: 20240305
  Receipt Date: 20240305
  Transmission Date: 20240410
  Serious: Yes (Life-Threatening, Hospitalization, Other)
  Sender: FDA-Public Use
  Company Number: US-DRL-USA-LIT/USA/24/0003807

PATIENT
  Age: 5 Year
  Sex: Female

DRUGS (6)
  1. AZACITIDINE [Suspect]
     Active Substance: AZACITIDINE
     Indication: Acute myeloid leukaemia
     Dosage: ON DAYS 1-7 FOR FIRST AND SECOND CYCLES
  2. AZACITIDINE [Suspect]
     Active Substance: AZACITIDINE
     Indication: Myelodysplastic syndrome
  3. VENETOCLAX [Suspect]
     Active Substance: VENETOCLAX
     Indication: Acute myeloid leukaemia
     Dosage: ON DAY 1
  4. VENETOCLAX [Suspect]
     Active Substance: VENETOCLAX
     Indication: Myelodysplastic syndrome
     Dosage: ON DAY 2
  5. VENETOCLAX [Suspect]
     Active Substance: VENETOCLAX
     Dosage: ON DAY 3
  6. VENETOCLAX [Suspect]
     Active Substance: VENETOCLAX
     Dosage: ONCE DAILY ON DAYS 4-21 DURING THE FIRST CYCLE AND DAYS 4-14 DURING THE SECOND CYCLE

REACTIONS (2)
  - Neutropenia [Unknown]
  - Myelosuppression [Unknown]
